FAERS Safety Report 21456272 (Version 1)
Quarter: 2022Q4

REPORT INFORMATION
  Report Type: Spontaneous
  Country: US (occurrence: None)
  Receive Date: 20221013
  Receipt Date: 20221013
  Transmission Date: 20230112
  Serious: No
  Sender: FDA-Public Use
  Company Number: None

PATIENT
  Age: 69 Year
  Sex: Male

DRUGS (1)
  1. LENALIDOMIDE [Suspect]
     Active Substance: LENALIDOMIDE
     Indication: Plasma cell myeloma
     Dosage: FREQUENCY : DAILY;?
     Route: 048
     Dates: start: 202206, end: 20220922

REACTIONS (4)
  - Therapy interrupted [None]
  - Full blood count decreased [None]
  - Contusion [None]
  - Platelet count decreased [None]

NARRATIVE: CASE EVENT DATE: 20220922
